FAERS Safety Report 9718518 (Version 1)
Quarter: 2013Q4

REPORT INFORMATION
  Report Type: Not Available
  Country: US (occurrence: US)
  Receive Date: 20131125
  Receipt Date: 20131125
  Transmission Date: 20140711
  Serious: No
  Sender: FDA-Public Use
  Company Number: US-VIVUS-2013V1000724

PATIENT
  Age: 60 Year
  Sex: Female
  Weight: 90.35 kg

DRUGS (21)
  1. QSYMIA 3.75MG/23MG [Suspect]
     Indication: OVERWEIGHT
     Route: 048
     Dates: start: 20130913, end: 20130918
  2. QSYMIA 3.75MG/23MG [Suspect]
     Indication: WEIGHT DECREASED
  3. NOVOLOG INSULIN [Concomitant]
     Indication: TYPE 1 DIABETES MELLITUS
     Route: 058
  4. INSULIN PUMP [Concomitant]
     Indication: TYPE 1 DIABETES MELLITUS
     Route: 058
  5. REGLAN [Concomitant]
     Indication: GASTROOESOPHAGEAL REFLUX DISEASE
     Route: 048
  6. SYNTHROID [Concomitant]
     Indication: HYPOTHYROIDISM
     Route: 048
  7. PROZAC [Concomitant]
     Indication: DEPRESSION
     Route: 048
  8. PREMARIN [Concomitant]
     Indication: PRODUCT USED FOR UNKNOWN INDICATION
     Route: 048
  9. TRAZADONE [Concomitant]
     Indication: PRODUCT USED FOR UNKNOWN INDICATION
     Route: 048
  10. ASPIRIN [Concomitant]
     Indication: PRODUCT USED FOR UNKNOWN INDICATION
     Route: 048
  11. MORPHINE [Concomitant]
     Indication: BACK PAIN
     Route: 048
     Dates: start: 2011
  12. PERCOCET [Concomitant]
     Indication: BACK PAIN
     Route: 048
     Dates: start: 2011
  13. FLEXERIL [Concomitant]
     Indication: BACK PAIN
     Route: 048
  14. PRILOSEC [Concomitant]
     Indication: GASTROOESOPHAGEAL REFLUX DISEASE
     Route: 048
  15. METOPROLOL [Concomitant]
     Indication: PRODUCT USED FOR UNKNOWN INDICATION
     Route: 048
  16. NITROSTAT [Concomitant]
     Indication: CHEST PAIN
     Route: 048
  17. LOVASTATIN [Concomitant]
     Indication: BLOOD CHOLESTEROL INCREASED
     Route: 048
  18. LASIX [Concomitant]
     Indication: PRODUCT USED FOR UNKNOWN INDICATION
     Route: 048
  19. POTASSIUM [Concomitant]
     Indication: PRODUCT USED FOR UNKNOWN INDICATION
     Route: 048
  20. BIOTEN [Concomitant]
     Indication: PRODUCT USED FOR UNKNOWN INDICATION
     Route: 048
  21. PHENTERMINE [Concomitant]
     Indication: PRODUCT USED FOR UNKNOWN INDICATION
     Route: 048

REACTIONS (1)
  - Somnolence [Not Recovered/Not Resolved]
